FAERS Safety Report 8365492-4 (Version None)
Quarter: 2012Q2

REPORT INFORMATION
  Report Type: 
  Country: None (occurrence: None)
  Receive Date: 20120516
  Receipt Date: 20120510
  Transmission Date: 20120825
  Serious: Yes (Hospitalization)
  Sender: FDA-Public Use
  Company Number: US-BAYER-2011-080624

PATIENT
  Age: 20 Year
  Sex: Female
  Weight: 65.76 kg

DRUGS (8)
  1. OXYCODONE HCL AND ACETAMINOPHEN [Concomitant]
     Dosage: 5MG-325MG TABLETS
     Dates: start: 20051223
  2. ZITHROMAX [Concomitant]
     Dosage: 1 G, UNK
     Dates: start: 20051222
  3. YASMIN [Suspect]
     Indication: PREMENSTRUAL SYNDROME
     Dosage: UNK
     Dates: start: 20030301, end: 20100801
  4. ELMIRON [Concomitant]
     Indication: CYSTITIS
     Dosage: UNK UNK, TID
  5. YASMIN [Suspect]
     Indication: ENDOMETRIOSIS
  6. MOTRIN [Concomitant]
     Dosage: 800 MG, PRN
  7. YAZ [Suspect]
     Indication: PREMENSTRUAL SYNDROME
     Dosage: UNK
     Dates: start: 20030301, end: 20100801
  8. SINGULAIR [Concomitant]
     Dosage: 10 MG, UNK

REACTIONS (3)
  - CHOLECYSTITIS CHRONIC [None]
  - PAIN [None]
  - MENTAL DISORDER [None]
